FAERS Safety Report 21873983 (Version 2)
Quarter: 2023Q1

REPORT INFORMATION
  Report Type: Spontaneous
  Country: FR (occurrence: FR)
  Receive Date: 20230117
  Receipt Date: 20230130
  Transmission Date: 20230417
  Serious: Yes (Hospitalization, Other)
  Sender: FDA-Public Use
  Company Number: None

PATIENT
  Age: 78 Year
  Sex: Male

DRUGS (13)
  1. OXALIPLATIN [Suspect]
     Active Substance: OXALIPLATIN
     Indication: Adenocarcinoma of colon
     Dosage: C4
     Route: 042
     Dates: start: 20200424, end: 20200424
  2. OXALIPLATIN [Suspect]
     Active Substance: OXALIPLATIN
     Dosage: C1
     Route: 042
     Dates: start: 20200131, end: 20200131
  3. DURVALUMAB [Suspect]
     Active Substance: DURVALUMAB
     Indication: Adenocarcinoma of colon
     Dosage: C5
     Route: 042
     Dates: start: 20200507, end: 20200507
  4. DURVALUMAB [Suspect]
     Active Substance: DURVALUMAB
     Dosage: C1
     Route: 042
     Dates: start: 20200131, end: 20200131
  5. DURVALUMAB [Suspect]
     Active Substance: DURVALUMAB
     Dosage: C4
     Route: 042
     Dates: start: 20200424, end: 20200424
  6. ELIQUIS [Suspect]
     Active Substance: APIXABAN
     Indication: Pulmonary embolism
     Dosage: ROA-20053000
     Route: 048
     Dates: start: 20200423, end: 20200521
  7. INNOHEP [Suspect]
     Active Substance: TINZAPARIN SODIUM
     Indication: Product used for unknown indication
     Route: 042
     Dates: start: 202005, end: 202005
  8. FLUOROURACIL [Suspect]
     Active Substance: FLUOROURACIL
     Indication: Adenocarcinoma of colon
     Dosage: C1
     Route: 042
     Dates: start: 20200131, end: 20200131
  9. FLUOROURACIL [Suspect]
     Active Substance: FLUOROURACIL
     Dosage: C4
     Route: 042
     Dates: start: 20200424, end: 20200424
  10. AUGMENTIN [Suspect]
     Active Substance: AMOXICILLIN\CLAVULANATE POTASSIUM
     Indication: Antibiotic therapy
     Dosage: ROA-20053000
     Route: 048
     Dates: start: 20200512
  11. AUGMENTIN [Suspect]
     Active Substance: AMOXICILLIN\CLAVULANATE POTASSIUM
     Dosage: ROA-20053000
     Route: 048
     Dates: start: 20200423
  12. TREMELIMUMAB [Suspect]
     Active Substance: TREMELIMUMAB
     Indication: Adenocarcinoma of colon
     Dosage: C4
     Route: 042
     Dates: start: 20200424, end: 20200424
  13. TREMELIMUMAB [Suspect]
     Active Substance: TREMELIMUMAB
     Dosage: C1
     Route: 042
     Dates: start: 20200131, end: 20200131

REACTIONS (1)
  - Drug reaction with eosinophilia and systemic symptoms [Recovered/Resolved]

NARRATIVE: CASE EVENT DATE: 20200524
